FAERS Safety Report 10188992 (Version 3)
Quarter: 2014Q2

REPORT INFORMATION
  Report Type: Spontaneous
  Country: IE (occurrence: IE)
  Receive Date: 20140522
  Receipt Date: 20140603
  Transmission Date: 20141212
  Serious: Yes (Hospitalization)
  Sender: FDA-Public Use
  Company Number: PHFR2014IE003576

PATIENT
  Age: 55 Year
  Sex: Male

DRUGS (2)
  1. CLOZARIL [Suspect]
     Indication: SCHIZOPHRENIA
     Dosage: UNK
     Route: 048
     Dates: start: 20140416, end: 20140509
  2. CLOZARIL [Suspect]
     Dosage: UNK
     Route: 048
     Dates: start: 20140519

REACTIONS (7)
  - Respiratory tract infection [Unknown]
  - Body temperature increased [Unknown]
  - White blood cell count increased [Unknown]
  - Neutrophil count increased [Unknown]
  - Tachycardia [Unknown]
  - Hypotension [Unknown]
  - Eosinophil count increased [Unknown]
